FAERS Safety Report 5051111-1 (Version None)
Quarter: 2006Q2

REPORT INFORMATION
  Report Type: 
  Country: None (occurrence: None)
  Receive Date: 20060614
  Receipt Date: 20060407
  Transmission Date: 20061013
  Serious: Yes (Other)
  Sender: FDA-Public Use
  Company Number: 443757

PATIENT
  Sex: Female

DRUGS (3)
  1. BONIVA [Suspect]
     Indication: DRUG USE FOR UNKNOWN INDICATION
     Dates: start: 20060406
  2. PREDNISONE TAB [Concomitant]
  3. PROTONIX [Concomitant]

REACTIONS (2)
  - CANDIDIASIS [None]
  - PAIN IN JAW [None]
